FAERS Safety Report 24835414 (Version 2)
Quarter: 2025Q2

REPORT INFORMATION
  Report Type: Spontaneous
  Country: GB (occurrence: GB)
  Receive Date: 20250113
  Receipt Date: 20250524
  Transmission Date: 20250717
  Serious: Yes (Other)
  Sender: ROCHE
  Company Number: GB-002147023-NVSC2025GB002921

PATIENT
  Sex: Female

DRUGS (1)
  1. XOLAIR [Suspect]
     Active Substance: OMALIZUMAB
     Indication: Asthma
     Dosage: STRENGTH: 150/1 MILLIGRAM PER MILLILITRE
     Route: 058

REACTIONS (2)
  - Bone cancer [Unknown]
  - Product dose omission issue [Unknown]
